FAERS Safety Report 7063044-X (Version None)
Quarter: 2010Q4

REPORT INFORMATION
  Report Type: 
  Country: None (occurrence: None)
  Receive Date: 20101026
  Receipt Date: 20100413
  Transmission Date: 20110411
  Serious: No
  Sender: FDA-Public Use
  Company Number: US-PFIZER INC-2010047062

PATIENT
  Sex: Male

DRUGS (2)
  1. LIPITOR [Suspect]
     Dosage: 40 MG, UNK
  2. TRICOR [Suspect]
     Dosage: UNK

REACTIONS (3)
  - GAIT DISTURBANCE [None]
  - MUSCLE DISORDER [None]
  - PAIN IN EXTREMITY [None]
